FAERS Safety Report 17781842 (Version 1)
Quarter: 2020Q2

REPORT INFORMATION
  Report Type: Report from Study
  Country: CA (occurrence: CA)
  Receive Date: 20200513
  Receipt Date: 20200513
  Transmission Date: 20200714
  Serious: Yes (Other)
  Sender: FDA-Public Use
  Company Number: CA-JNJFOC-20200500177

PATIENT
  Age: 74 Year
  Sex: Female

DRUGS (1)
  1. STELARA [Suspect]
     Active Substance: USTEKINUMAB
     Indication: CROHN^S DISEASE
     Dosage: ON 04-MAY-2020, THE PATIENT RECEIVED 6TH INFUSION WITH 90 MILLIGRAM OF STELARA
     Route: 058
     Dates: start: 20190816

REACTIONS (3)
  - Wound infection [Recovered/Resolved]
  - Skin laceration [Unknown]
  - Crohn^s disease [Recovered/Resolved]

NARRATIVE: CASE EVENT DATE: 202004
